FAERS Safety Report 17929084 (Version 2)
Quarter: 2021Q2

REPORT INFORMATION
  Report Type: Spontaneous
  Country: CA (occurrence: CA)
  Receive Date: 20200623
  Receipt Date: 20210628
  Transmission Date: 20210717
  Serious: Yes (Hospitalization)
  Sender: FDA-Public Use
  Company Number: CA-TEVA-2020-CA-1791113

PATIENT
  Age: 6 Year
  Sex: Male

DRUGS (5)
  1. VALPROIC ACID. [Concomitant]
     Active Substance: VALPROIC ACID
  2. CLONIDINE. [Suspect]
     Active Substance: CLONIDINE
     Dosage: 100 MICROGRAM DAILY;
     Route: 048
  3. CLOBAZAM. [Concomitant]
     Active Substance: CLOBAZAM
  4. CLONIDINE. [Suspect]
     Active Substance: CLONIDINE
     Dosage: 100 MICROGRAM DAILY;
     Route: 048
  5. MELATONIN [Concomitant]
     Active Substance: MELATONIN

REACTIONS (5)
  - Asthenia [Recovered/Resolved]
  - Epilepsy [Recovered/Resolved]
  - Accidental overdose [Recovered/Resolved]
  - Condition aggravated [Recovered/Resolved]
  - Somnolence [Recovered/Resolved]
